FAERS Safety Report 6581328-6 (Version None)
Quarter: 2010Q1

REPORT INFORMATION
  Report Type: 
  Country: None (occurrence: None)
  Receive Date: 20100215
  Receipt Date: 20100201
  Transmission Date: 20100710
  Serious: Yes (Other)
  Sender: FDA-Public Use
  Company Number: BR-JNJFOC-20100204517

PATIENT
  Age: 28 Year
  Sex: Female
  Weight: 87 kg

DRUGS (2)
  1. MYLICON GOTAS [Suspect]
     Indication: FLATULENCE
     Dosage: 40 DROPS 3 TIMES A DAY
     Route: 048
  2. OTILONIUM BROMIDE [Concomitant]

REACTIONS (3)
  - HYPOAESTHESIA [None]
  - HYPOAESTHESIA FACIAL [None]
  - OVERDOSE [None]
